FAERS Safety Report 9659877 (Version 1)
Quarter: 2013Q4

REPORT INFORMATION
  Report Type: Report from Study
  Country: AU (occurrence: AU)
  Receive Date: 20131031
  Receipt Date: 20131031
  Transmission Date: 20140711
  Serious: Yes (Other)
  Sender: FDA-Public Use
  Company Number: AU-SA-2013SA107174

PATIENT
  Age: 61 Year
  Sex: Female

DRUGS (13)
  1. ARAVA [Suspect]
     Indication: PRODUCT USED FOR UNKNOWN INDICATION
     Route: 065
     Dates: start: 20011122, end: 20051001
  2. ARAVA [Suspect]
     Indication: PRODUCT USED FOR UNKNOWN INDICATION
     Route: 048
     Dates: start: 20120830
  3. PLAQUENIL [Concomitant]
  4. NEXIUM [Concomitant]
  5. LIPITOR [Concomitant]
  6. FOLIC ACID [Concomitant]
  7. VITAMIN B12 [Concomitant]
     Dosage: 1000 MCG
  8. ZINC [Concomitant]
     Dosage: 220 MG
  9. GARLIC [Concomitant]
  10. NAPROSYN [Concomitant]
  11. MERSYNDOL [Concomitant]
  12. TEMAZEPAM [Concomitant]
  13. MAXOLON [Concomitant]

REACTIONS (2)
  - Eye haemorrhage [Recovering/Resolving]
  - Paraesthesia [Not Recovered/Not Resolved]
